FAERS Safety Report 26005727 (Version 1)
Quarter: 2025Q4

REPORT INFORMATION
  Report Type: Spontaneous
  Country: US (occurrence: None)
  Receive Date: 20251105
  Receipt Date: 20251105
  Transmission Date: 20260117
  Serious: Yes (Hospitalization)
  Sender: FDA-CTU
  Company Number: None

PATIENT
  Sex: Male

DRUGS (11)
  1. DASATINIB [Suspect]
     Active Substance: DASATINIB
     Indication: Diffuse large B-cell lymphoma
     Dosage: TAKE 1 TABLET BY MOUTH TAKE ALONG WITH 1 (20 MG) TABLET EVERY DAY TOTAL DAILY DOSE 120 MG
     Route: 048
     Dates: start: 20250916
  2. ALLOPURINOL [Concomitant]
     Active Substance: ALLOPURINOL
  3. AMLODIPINE [Concomitant]
     Active Substance: AMLODIPINE BESYLATE
  4. ATIVAN [Concomitant]
     Active Substance: LORAZEPAM
  5. AZELASTINE [Concomitant]
     Active Substance: AZELASTINE
  6. BACTRIM DS [Concomitant]
     Active Substance: SULFAMETHOXAZOLE\TRIMETHOPRIM
  7. D5W/NACL [Concomitant]
  8. DASATINIB [Concomitant]
     Active Substance: DASATINIB
  9. DIPHENHYDRAM [Concomitant]
  10. DRONABINOL [Concomitant]
     Active Substance: DRONABINOL
  11. EPIPEN [Concomitant]
     Active Substance: EPINEPHRINE

REACTIONS (5)
  - Conjunctival haemorrhage [None]
  - Oedema peripheral [None]
  - Anaemia [None]
  - Thrombocytopenia [None]
  - Tremor [None]
